FAERS Safety Report 4610356-2 (Version None)
Quarter: 2005Q1

REPORT INFORMATION
  Report Type: 
  Country: None (occurrence: None)
  Receive Date: 20050314
  Receipt Date: 20050227
  Transmission Date: 20050727
  Serious: Yes (Hospitalization)
  Sender: FDA-Public Use
  Company Number: S05-USA-01226-01

PATIENT
  Age: 85 Year
  Sex: Male

DRUGS (8)
  1. NAMENDA [Suspect]
     Indication: DEMENTIA ALZHEIMER'S TYPE
     Dosage: 10 MG BID PO
     Route: 048
     Dates: end: 20050201
  2. NAMENDA [Suspect]
     Indication: DEMENTIA ALZHEIMER'S TYPE
     Dosage: 2.5 MG, QD PO
     Route: 048
     Dates: start: 20050201
  3. NAMENDA [Suspect]
     Indication: DEMENTIA ALZHEIMER'S TYPE
  4. NAMENDA [Suspect]
     Indication: DEMENTIA ALZHEIMER'S TYPE
     Dosage: 5 MG QD PO
     Route: 048
     Dates: start: 20040901
  5. NAMENDA [Suspect]
     Indication: DEMENTIA ALZHEIMER'S TYPE
     Dosage: 5 MG BID PO
     Route: 048
  6. NAMENDA [Suspect]
     Indication: DEMENTIA ALZHEIMER'S TYPE
     Dosage: 15 MG QD PO
     Route: 048
  7. GLUCOVANCE [Concomitant]
  8. ARICEPT [Concomitant]

REACTIONS (3)
  - ORTHOSTATIC HYPOTENSION [None]
  - RENAL FAILURE ACUTE [None]
  - SYNCOPE [None]
